FAERS Safety Report 18528008 (Version 2)
Quarter: 2020Q4

REPORT INFORMATION
  Report Type: Spontaneous
  Country: FR (occurrence: FR)
  Receive Date: 20201120
  Receipt Date: 20201208
  Transmission Date: 20210114
  Serious: Yes (Other)
  Sender: FDA-Public Use
  Company Number: FR-009507513-2011FRA010667

PATIENT
  Age: 38 Year
  Sex: Male

DRUGS (12)
  1. TAZOBACTAM [Suspect]
     Active Substance: TAZOBACTAM
  2. AMOXICILLIN. [Suspect]
     Active Substance: AMOXICILLIN
  3. ISONIAZID. [Suspect]
     Active Substance: ISONIAZID
  4. RIFAMPIN. [Suspect]
     Active Substance: RIFAMPIN
  5. ETHAMBUTOL [Suspect]
     Active Substance: ETHAMBUTOL HYDROCHLORIDE
  6. PYRAZINAMIDE. [Suspect]
     Active Substance: PYRAZINAMIDE
  7. PIPERACILLIN AND TAZOBACTAM [Suspect]
     Active Substance: PIPERACILLIN SODIUM\TAZOBACTAM SODIUM
  8. DAPTOMYCIN. [Suspect]
     Active Substance: DAPTOMYCIN
  9. IMIPENEM AND CILASTATIN [Suspect]
     Active Substance: CILASTATIN SODIUM\IMIPENEM
  10. CIPROFLOXACIN. [Suspect]
     Active Substance: CIPROFLOXACIN
  11. TEICOPLANIN [Suspect]
     Active Substance: TEICOPLANIN
  12. VANCOMYCIN [Suspect]
     Active Substance: VANCOMYCIN

REACTIONS (3)
  - Drug reaction with eosinophilia and systemic symptoms [Unknown]
  - Skin test positive [Unknown]
  - Therapeutic product cross-reactivity [Unknown]
